FAERS Safety Report 8638568 (Version 2)
Quarter: 2012Q4

REPORT INFORMATION
  Report Type: 
  Country: US (occurrence: US)
  Receive Date: 20120627
  Receipt Date: 20121106
  Transmission Date: 20130627
  Serious: Yes (Hospitalization)
  Sender: FDA-Public Use
  Company Number: US-BAYER-2012-062879

PATIENT
  Age: 44 Year
  Sex: Female
  Weight: 88 kg

DRUGS (9)
  1. YASMIN [Suspect]
     Indication: CONTRACEPTION
     Dosage: UNK
     Dates: start: 20080120, end: 200808
  2. OCELLA [Suspect]
     Indication: CONTRACEPTION
     Dosage: UNK
     Dates: start: 20080801, end: 201011
  3. MICARDIS HCT [Concomitant]
     Indication: HYPERTENSION
     Dosage: 40 - 12.5mg, QD
  4. RANITIDINE [Concomitant]
     Dosage: 150 mg, QD
  5. ANTIBIOTICS [Concomitant]
  6. MEFOXIN [Concomitant]
  7. VICODIN [Concomitant]
     Dosage: 5mg/500mg
  8. CIPRO [Concomitant]
     Dosage: 500 mg, UNK
  9. UNCODEABLE ^UNCLASSIFIABLE^ [Concomitant]

REACTIONS (6)
  - Cholecystitis [None]
  - Injury [None]
  - Pain [None]
  - Abdominal pain upper [None]
  - Dyspepsia [None]
  - Abdominal distension [None]
